FAERS Safety Report 5793157-1 (Version None)
Quarter: 2008Q2

REPORT INFORMATION
  Report Type: 
  Country: None (occurrence: None)
  Receive Date: 20080627
  Receipt Date: 20080603
  Transmission Date: 20081010
  Serious: No
  Sender: FDA-Public Use
  Company Number: A0730915A

PATIENT
  Age: 64 Year
  Sex: Male

DRUGS (2)
  1. FLOVENT [Suspect]
     Indication: ASTHMA
     Dosage: 1PUFF UNKNOWN
     Route: 055
     Dates: start: 20080528, end: 20080528
  2. PRIMATENE MIST [Concomitant]

REACTIONS (2)
  - DYSPHONIA [None]
  - SPEECH DISORDER [None]
